FAERS Safety Report 9514717 (Version 1)
Quarter: 2013Q1

REPORT INFORMATION
  Report Type: Spontaneous
  Country: US (occurrence: None)
  Receive Date: 20130305
  Receipt Date: 20130305
  Transmission Date: 20140127
  Serious: Yes (Hospitalization)
  Sender: FDA-Public Use
  Company Number: 163-21880-12112066

PATIENT
  Age: 63 Year
  Sex: Male
  Weight: 105.24 kg

DRUGS (10)
  1. REVLIMID (LENALIDOMIDE) (25 MILLIGRAM, CAPSULES) [Suspect]
     Indication: PLASMA CELL MYELOMA
     Dosage: 25 MG, PO
     Route: 048
     Dates: start: 20080929
  2. ASTELIN (AZELASTINE HYDROCHLORIDE) (UNKNOWN) [Concomitant]
  3. DEXAMETHASONE (DEXAMETHASONE) (UNKNOWN) [Concomitant]
  4. EPIPEN (EPINEPHRINE) (UNKNOWN) [Concomitant]
  5. LASIX (FUROSEMIDE) (TABLETS) [Concomitant]
  6. NASONEX (MOMETASONE FUROATE) (UNKNOWN) [Concomitant]
  7. POTASSIUM BICARBONATE (POTASSIUM BICARBONATE) (UNKNOWN) [Concomitant]
  8. PREDNISONE (PREDNISONE) (TABLETS) [Concomitant]
  9. PROAIR HFA (SALBUTAMOL SULFATE) (TABLETS) [Concomitant]
  10. SINGULAIR [Concomitant]

REACTIONS (1)
  - Cellulitis [None]
